FAERS Safety Report 9066837 (Version 1)
Quarter: 2013Q1

REPORT INFORMATION
  Report Type: Report from Study
  Country: ES (occurrence: ES)
  Receive Date: 20130214
  Receipt Date: 20130214
  Transmission Date: 20140127
  Serious: Yes (Death, Hospitalization)
  Sender: FDA-Public Use
  Company Number: ES-GLAXOSMITHKLINE-B0867263A

PATIENT
  Age: 64 Year
  Sex: Male

DRUGS (1)
  1. HYCAMTIN [Suspect]
     Indication: SMALL CELL LUNG CANCER
     Dosage: 3.75MG PER DAY
     Route: 048
     Dates: start: 20120528, end: 20120602

REACTIONS (3)
  - Interstitial lung disease [Fatal]
  - Acute respiratory failure [Fatal]
  - Toxicity to various agents [Fatal]
